APPROVED DRUG PRODUCT: AVANDARYL
Active Ingredient: GLIMEPIRIDE; ROSIGLITAZONE MALEATE
Strength: 4MG;8MG **Federal Register determination that product was not discontinued or withdrawn for safety or effectiveness reasons**
Dosage Form/Route: TABLET;ORAL
Application: N021700 | Product #005
Applicant: SB PHARMCO PUERTO RICO INC
Approved: Mar 30, 2007 | RLD: Yes | RS: No | Type: DISCN